FAERS Safety Report 4354648-3 (Version None)
Quarter: 2004Q2

REPORT INFORMATION
  Report Type: 
  Country: None (occurrence: None)
  Receive Date: 20040506
  Receipt Date: 20040506
  Transmission Date: 20050107
  Serious: Yes (Hospitalization)
  Sender: FDA-Public Use
  Company Number: None

PATIENT
  Sex: Male
  Weight: 81.9 kg

DRUGS (8)
  1. IMATINIB MESYLATE [Suspect]
     Indication: ANAPLASTIC ASTROCYTOMA
     Dosage: 500 MG PO BID
     Route: 048
     Dates: start: 20040323, end: 20040419
  2. HYDROXYUREA [Suspect]
     Indication: ANAPLASTIC ASTROCYTOMA
     Dosage: 500 MG PO BID
     Route: 048
     Dates: start: 20040324, end: 20040419
  3. KEPPRA [Concomitant]
  4. DECADRON [Concomitant]
  5. PROTONIX [Concomitant]
  6. LIPITOR [Concomitant]
  7. TRILEPTAL [Concomitant]
  8. RITALIN [Concomitant]

REACTIONS (6)
  - CHEST X-RAY ABNORMAL [None]
  - FEBRILE NEUTROPENIA [None]
  - LETHARGY [None]
  - MENTAL STATUS CHANGES [None]
  - ORAL CANDIDIASIS [None]
  - PNEUMONIA [None]
